FAERS Safety Report 11772346 (Version 5)
Quarter: 2016Q3

REPORT INFORMATION
  Report Type: Report from Study
  Country: DE (occurrence: DE)
  Receive Date: 20151124
  Receipt Date: 20160825
  Transmission Date: 20161109
  Serious: Yes (Hospitalization, Other)
  Sender: FDA-Public Use
  Company Number: DE-BRISTOL-MYERS SQUIBB COMPANY-BMS-2015-079563

PATIENT
  Age: 75 Year
  Sex: Male
  Weight: 80 kg

DRUGS (1)
  1. APIXABAN [Suspect]
     Active Substance: APIXABAN
     Indication: CEREBROVASCULAR ACCIDENT PROPHYLAXIS
     Dosage: 5 MG, BID
     Route: 048
     Dates: start: 20140212, end: 20160225

REACTIONS (8)
  - Emphysema [Unknown]
  - Catheter site discharge [Unknown]
  - Post procedural haemorrhage [Unknown]
  - Packed red blood cell transfusion [Unknown]
  - Haemorrhage [Unknown]
  - Pulmonary haemorrhage [Unknown]
  - Bronchitis chronic [Unknown]
  - Surgery [Unknown]

NARRATIVE: CASE EVENT DATE: 20150907
